FAERS Safety Report 9263935 (Version 1)
Quarter: 2013Q2

REPORT INFORMATION
  Report Type: Spontaneous
  Country: US (occurrence: None)
  Receive Date: 20130429
  Receipt Date: 20130429
  Transmission Date: 20140414
  Serious: Yes (Other)
  Sender: FDA-Public Use
  Company Number: None

PATIENT
  Age: 59 Year
  Sex: Male
  Weight: 64.86 kg

DRUGS (11)
  1. RAD001 [Suspect]
     Indication: BREAST CANCER METASTATIC
     Dosage: 10 MG BID PO QD
     Route: 048
     Dates: start: 20110303, end: 20110303
  2. FULVESTRANT [Suspect]
     Indication: BREAST CANCER METASTATIC
     Route: 030
     Dates: start: 20110303
  3. LOTROL [Concomitant]
  4. LORTAB [Concomitant]
  5. ALPRAZOLAM [Concomitant]
  6. AMBIEN [Concomitant]
  7. MARINOL [Concomitant]
  8. PROTONIX [Concomitant]
  9. PORCOCET [Concomitant]
  10. PHENORGAN [Concomitant]
  11. PRAVASTATIN [Concomitant]

REACTIONS (2)
  - Thrombosis [None]
  - Cardiac disorder [None]
